FAERS Safety Report 23456246 (Version 1)
Quarter: 2024Q1

REPORT INFORMATION
  Report Type: Spontaneous
  Country: PL (occurrence: PL)
  Receive Date: 20240130
  Receipt Date: 20240130
  Transmission Date: 20240409
  Serious: Yes (Other)
  Sender: FDA-Public Use
  Company Number: PL-EMA-DD-20231009-7182749-111956

PATIENT
  Age: 7 Year
  Sex: Female

DRUGS (7)
  1. MERCAPTOPURINE [Suspect]
     Active Substance: MERCAPTOPURINE
     Indication: Non-Hodgkin^s lymphoma stage I
     Dosage: MAINTENANCE THERAPY
     Route: 065
  2. MERCAPTOPURINE [Suspect]
     Active Substance: MERCAPTOPURINE
     Dosage: UNK
     Route: 065
  3. METHOTREXATE [Suspect]
     Active Substance: METHOTREXATE
     Indication: Non-Hodgkin^s lymphoma stage I
     Dosage: UNK
     Route: 037
  4. METHOTREXATE [Suspect]
     Active Substance: METHOTREXATE
     Dosage: MAINTENANCE THERAPY
     Route: 037
  5. METHOTREXATE [Suspect]
     Active Substance: METHOTREXATE
     Dosage: ON THE FIRST AND SEVENTH DAY OF TREATMENT
     Route: 037
  6. PREDNISONE [Suspect]
     Active Substance: PREDNISONE
     Dosage: UNK
     Route: 037
  7. PREDNISONE [Suspect]
     Active Substance: PREDNISONE
     Indication: Non-Hodgkin^s lymphoma
     Dosage: ON THE FIRST AND SEVENTH DAY OF TREATMENT
     Route: 037

REACTIONS (5)
  - Toe walking [Recovering/Resolving]
  - Posture abnormal [Recovering/Resolving]
  - Kyphosis [Recovering/Resolving]
  - Immobile [Recovering/Resolving]
  - Scoliosis [Recovering/Resolving]
